FAERS Safety Report 6145528-1 (Version None)
Quarter: 2009Q2

REPORT INFORMATION
  Report Type: 
  Country: None (occurrence: None)
  Receive Date: 20090402
  Receipt Date: 20090318
  Transmission Date: 20091009
  Serious: Yes (Hospitalization)
  Sender: FDA-Public Use
  Company Number: 2009BI009074

PATIENT
  Age: 59 Year
  Sex: Male

DRUGS (7)
  1. ZEVALIN [Suspect]
     Indication: MANTLE CELL LYMPHOMA
     Dosage: 32 MCI; 1X; IV
     Route: 042
     Dates: start: 20090116, end: 20090116
  2. RITUXIMAB [Concomitant]
  3. VALTREX [Concomitant]
  4. FLUDARABINE [Concomitant]
  5. MELPHALAN [Concomitant]
  6. CYCLOSPORINE [Concomitant]
  7. TACONAZOL [Concomitant]

REACTIONS (2)
  - CONDITION AGGRAVATED [None]
  - RENAL FAILURE CHRONIC [None]
